FAERS Safety Report 13643076 (Version 1)
Quarter: 2017Q2

REPORT INFORMATION
  Report Type: Spontaneous
  Country: US (occurrence: US)
  Receive Date: 20170612
  Receipt Date: 20170612
  Transmission Date: 20170830
  Serious: Yes (Hospitalization, Disabling)
  Sender: FDA-Public Use
  Company Number: None

PATIENT
  Age: 55 Year
  Sex: Female
  Weight: 68.1 kg

DRUGS (2)
  1. GANDILIUM [Suspect]
     Active Substance: GADOLINIUM
  2. AMBIENT [Concomitant]

REACTIONS (7)
  - Head discomfort [None]
  - Headache [None]
  - Vomiting [None]
  - Nausea [None]
  - Pain [None]
  - Urticaria [None]
  - Pruritus [None]

NARRATIVE: CASE EVENT DATE: 20170604
